FAERS Safety Report 4723708-7 (Version None)
Quarter: 2005Q3

REPORT INFORMATION
  Report Type: 
  Country: None (occurrence: None)
  Receive Date: 20050719
  Receipt Date: 20050308
  Transmission Date: 20060218
  Serious: Yes (Other)
  Sender: FDA-Public Use
  Company Number: 602677

PATIENT
  Age: 41 Year
  Sex: Male

DRUGS (2)
  1. HEMOFIL [Suspect]
     Indication: HAEMOPHILIA
     Dates: start: 19820101, end: 19820101
  2. PROPLEX T [Suspect]
     Dates: start: 19840101, end: 19890101

REACTIONS (1)
  - HEPATITIS C VIRUS [None]
